FAERS Safety Report 7948776-0 (Version None)
Quarter: 2011Q4

REPORT INFORMATION
  Report Type: 
  Country: None (occurrence: None)
  Receive Date: 20111130
  Receipt Date: 20111121
  Transmission Date: 20120403
  Serious: Yes (Other)
  Sender: FDA-Public Use
  Company Number: UY-NOVOPROD-340246

PATIENT

DRUGS (8)
  1. SERTRALINE HYDROCHLORIDE [Concomitant]
     Dosage: 50 MG, QD
     Route: 048
  2. FUROSEMID                          /00032601/ [Concomitant]
     Dosage: 20-40MG/DAY
     Route: 048
  3. CAPTOPRIL [Concomitant]
  4. INSULATARD HM PENFILL [Suspect]
     Indication: TYPE 2 DIABETES MELLITUS
     Dosage: 10 IU, QD
     Route: 058
     Dates: start: 20060101
  5. DIGOXIN [Concomitant]
     Dosage: 12.5-25 MG/5 DAYS IN A WEEK
     Route: 048
  6. DILTIAZEM HCL [Concomitant]
     Route: 048
  7. CALCITRIOL [Concomitant]
     Dosage: ONE SHOT/DAY/RHINAL
  8. CINITAPRIDE [Concomitant]
     Dosage: ONE PILL PER MEAL/DAY
     Route: 048

REACTIONS (8)
  - EYELID OEDEMA [None]
  - BLOOD GLUCOSE INCREASED [None]
  - RASH PRURITIC [None]
  - BLOOD GLUCOSE FLUCTUATION [None]
  - INJECTION SITE MACULE [None]
  - INJECTION SITE PAPULE [None]
  - RASH GENERALISED [None]
  - BRONCHOSPASM [None]
